FAERS Safety Report 6725038-0 (Version None)
Quarter: 2010Q2

REPORT INFORMATION
  Report Type: 
  Country: None (occurrence: None)
  Receive Date: 20100514
  Receipt Date: 20100510
  Transmission Date: 20101027
  Serious: No
  Sender: FDA-Public Use
  Company Number: US-BIOGENIDEC-2010BI015386

PATIENT
  Sex: Female

DRUGS (1)
  1. AVONEX [Suspect]
     Indication: MULTIPLE SCLEROSIS
     Route: 030

REACTIONS (5)
  - DIABETES MELLITUS [None]
  - EMOTIONAL DISTRESS [None]
  - HEADACHE [None]
  - INFLUENZA [None]
  - MUSCULOSKELETAL DISORDER [None]
